FAERS Safety Report 19583654 (Version 1)
Quarter: 2021Q3

REPORT INFORMATION
  Report Type: Spontaneous
  Country: IT (occurrence: IT)
  Receive Date: 20210720
  Receipt Date: 20210720
  Transmission Date: 20211014
  Serious: Yes (Hospitalization)
  Sender: FDA-Public Use
  Company Number: IT-TEVA-2021-IT-1933453

PATIENT
  Age: 76 Year
  Sex: Male

DRUGS (1)
  1. BICALUTAMIDE. [Suspect]
     Active Substance: BICALUTAMIDE
     Indication: HORMONE THERAPY
     Route: 065

REACTIONS (5)
  - Tumour necrosis [Recovered/Resolved]
  - Deafness [Unknown]
  - Meningioma [Recovered/Resolved]
  - Abscess sterile [Recovered/Resolved]
  - Infected neoplasm [Recovered/Resolved]

NARRATIVE: CASE EVENT DATE: 2018
